FAERS Safety Report 9154369 (Version 1)
Quarter: 2013Q1

REPORT INFORMATION
  Report Type: Spontaneous
  Country: US (occurrence: US)
  Receive Date: 20130311
  Receipt Date: 20130311
  Transmission Date: 20140127
  Serious: Yes (Hospitalization)
  Sender: FDA-Public Use
  Company Number: US-BAYER-2013-027681

PATIENT
  Age: 18 Year
  Sex: Female
  Weight: 49.43 kg

DRUGS (4)
  1. OCELLA [Suspect]
     Indication: CONTRACEPTION
  2. TOBRADEX [Concomitant]
     Indication: CONJUNCTIVITIS ALLERGIC
  3. BIAXIN [Concomitant]
     Dosage: UNK
     Dates: start: 20090922
  4. CLARITHROMYCIN [Concomitant]

REACTIONS (1)
  - Pulmonary embolism [None]
